FAERS Safety Report 22099375 (Version 2)
Quarter: 2023Q2

REPORT INFORMATION
  Report Type: Spontaneous
  Country: BR (occurrence: BR)
  Receive Date: 20230315
  Receipt Date: 20230405
  Transmission Date: 20230721
  Serious: Yes (Other)
  Sender: FDA-Public Use
  Company Number: BR-ELI_LILLY_AND_COMPANY-BR202303001701

PATIENT
  Sex: Female

DRUGS (4)
  1. TALTZ [Suspect]
     Active Substance: IXEKIZUMAB
     Indication: Psoriatic arthropathy
     Dosage: 160 MG, OTHER (LOADING DOSE)
     Route: 058
     Dates: start: 202203
  2. TALTZ [Suspect]
     Active Substance: IXEKIZUMAB
     Dosage: 80 MG, UNKNOWN (EVERY MONTH)
     Route: 058
     Dates: end: 20230316
  3. HEPATITIS B VIRUS VACCINE [Concomitant]
     Active Substance: HEPATITIS B VIRUS VACCINE
     Indication: Product used for unknown indication
  4. NAPROXEN [Concomitant]
     Active Substance: NAPROXEN
     Indication: Product used for unknown indication

REACTIONS (10)
  - Hepatitis B [Unknown]
  - Fatigue [Unknown]
  - Decreased appetite [Unknown]
  - Arthralgia [Unknown]
  - Headache [Recovered/Resolved]
  - Liver disorder [Unknown]
  - Feeding disorder [Unknown]
  - Fungal infection [Recovering/Resolving]
  - Impaired healing [Recovering/Resolving]
  - Nausea [Recovered/Resolved]

NARRATIVE: CASE EVENT DATE: 20220101
